FAERS Safety Report 10732524 (Version 3)
Quarter: 2015Q2

REPORT INFORMATION
  Report Type: Report from Study
  Country: FR (occurrence: FR)
  Receive Date: 20150123
  Receipt Date: 20150415
  Transmission Date: 20150821
  Serious: Yes (Death, Hospitalization, Other)
  Sender: FDA-Public Use
  Company Number: FR-CELGENE-FRA-2014121845

PATIENT
  Age: 65 Year
  Sex: Male
  Weight: 80 kg

DRUGS (63)
  1. FRESUBIN [Concomitant]
     Active Substance: AMINO ACIDS\DEXTROSE\ELECTROLYTES NOS\SOYBEAN OIL\VITAMINS
     Indication: PRODUCT USED FOR UNKNOWN INDICATION
     Route: 065
  2. PARACETAMOL [Concomitant]
     Active Substance: ACETAMINOPHEN
     Route: 048
     Dates: start: 20141201, end: 20141203
  3. EUPANTOL [Concomitant]
     Active Substance: PANTOPRAZOLE SODIUM
     Indication: PEPTIC ULCER
     Route: 048
     Dates: start: 20141118, end: 20141126
  4. AZTREONAM. [Concomitant]
     Active Substance: AZTREONAM
     Indication: ANTIBIOTIC PROPHYLAXIS
     Dosage: 30 MILLIGRAM
     Route: 041
     Dates: start: 20141124, end: 20141203
  5. DEBRIDAT [Concomitant]
     Active Substance: TRIMEBUTINE MALEATE
     Indication: PAIN
     Route: 048
     Dates: start: 20141118, end: 20141126
  6. DEXAMETHASONE. [Concomitant]
     Active Substance: DEXAMETHASONE
     Route: 065
     Dates: start: 20141010
  7. XATRAL [Concomitant]
     Active Substance: ALFUZOSIN
     Indication: BENIGN PROSTATIC HYPERPLASIA
  8. PHLOROGLUCINOL [Concomitant]
     Active Substance: PHLOROGLUCINOL
     Route: 048
     Dates: start: 20141201, end: 20141203
  9. ZELITREX [Concomitant]
     Active Substance: VALACYCLOVIR HYDROCHLORIDE
     Route: 048
     Dates: start: 20141202, end: 20141203
  10. PLITICAN [Concomitant]
     Active Substance: ALIZAPRIDE HYDROCHLORIDE
     Indication: GASTROINTESTINAL MOTILITY DISORDER
     Route: 041
     Dates: start: 20141120, end: 20141203
  11. LAROXYL [Concomitant]
     Active Substance: AMITRIPTYLINE
     Indication: PROPHYLAXIS
     Route: 048
     Dates: start: 20141124, end: 20141201
  12. MONICOR [Concomitant]
     Active Substance: ISOSORBIDE MONONITRATE
     Indication: PRODUCT USED FOR UNKNOWN INDICATION
     Route: 065
  13. ZYVOXID [Concomitant]
     Active Substance: LINEZOLID
     Indication: FEBRILE BONE MARROW APLASIA
     Route: 065
     Dates: start: 20140816
  14. VELCADE [Concomitant]
     Active Substance: BORTEZOMIB
     Indication: B-CELL LYMPHOMA
     Route: 065
     Dates: start: 20140917
  15. METHYLPREDNISOLONE. [Concomitant]
     Active Substance: METHYLPREDNISOLONE
     Indication: ASCITES
     Dosage: 1000 MILLIGRAM
     Route: 065
  16. MORPHINE [Concomitant]
     Active Substance: MORPHINE
     Route: 041
     Dates: start: 20141124, end: 20141203
  17. SPASFON [Concomitant]
     Active Substance: PHLOROGLUCINOL
     Route: 048
     Dates: start: 20141118, end: 20141126
  18. INEXIUM [Concomitant]
     Active Substance: ESOMEPRAZOLE
     Indication: PRODUCT USED FOR UNKNOWN INDICATION
     Route: 065
  19. AZACTAM [Concomitant]
     Active Substance: AZTREONAM
     Indication: GASTROINTESTINAL INFECTION
     Route: 065
     Dates: start: 20141124
  20. DEXAMETHASONE. [Concomitant]
     Active Substance: DEXAMETHASONE
     Indication: B-CELL LYMPHOMA
     Route: 065
     Dates: start: 20140917
  21. TRIMEBUTINE [Concomitant]
     Active Substance: TRIMEBUTINE
     Indication: PROPHYLAXIS
     Dosage: SACHET
     Route: 048
     Dates: start: 20141118, end: 20141126
  22. TRIMEBUTINE [Concomitant]
     Active Substance: TRIMEBUTINE
     Route: 048
     Dates: start: 20141201, end: 20141203
  23. PARACETAMOL [Concomitant]
     Active Substance: ACETAMINOPHEN
     Indication: ANALGESIC THERAPY
     Route: 041
     Dates: start: 20141118, end: 20141201
  24. ACUPAN [Concomitant]
     Active Substance: NEFOPAM HYDROCHLORIDE
     Indication: GASTROINTESTINAL INFECTION
     Route: 065
  25. ACUPAN [Concomitant]
     Active Substance: NEFOPAM HYDROCHLORIDE
     Indication: FEBRILE BONE MARROW APLASIA
     Route: 065
     Dates: start: 20141124
  26. CETIRIZINE [Concomitant]
     Active Substance: CETIRIZINE HYDROCHLORIDE
     Indication: PROPHYLAXIS
     Dosage: 10 MILLIGRAM
     Route: 048
     Dates: start: 20141121, end: 20141201
  27. MIDAZOLAM [Concomitant]
     Active Substance: MIDAZOLAM\MIDAZOLAM HYDROCHLORIDE
     Route: 041
     Dates: start: 20141125, end: 20141202
  28. KARDEGIC [Concomitant]
     Active Substance: ASPIRIN LYSINE
     Indication: FEBRILE BONE MARROW APLASIA
     Route: 065
  29. SPASFON [Concomitant]
     Active Substance: PHLOROGLUCINOL
     Indication: GASTROINTESTINAL INFECTION
     Route: 065
     Dates: start: 20141124
  30. REVLIMID [Suspect]
     Active Substance: LENALIDOMIDE
     Indication: DIFFUSE LARGE B-CELL LYMPHOMA
     Dosage: 20 MILLIGRAM
     Route: 048
     Dates: start: 20141121, end: 20141204
  31. VELCADE [Concomitant]
     Active Substance: BORTEZOMIB
     Route: 065
     Dates: start: 20141010
  32. TRIMEBUTINE [Concomitant]
     Active Substance: TRIMEBUTINE
     Route: 065
  33. PHLOROGLUCINOL [Concomitant]
     Active Substance: PHLOROGLUCINOL
     Indication: PROPHYLAXIS
     Route: 048
     Dates: start: 20141118, end: 20141126
  34. OLIMEL [Concomitant]
     Active Substance: AMINO ACIDS\DEXTROSE\SOYBEAN OIL
     Indication: PRODUCT USED FOR UNKNOWN INDICATION
     Dosage: 1 LITERS
     Route: 041
     Dates: start: 20141118, end: 20141203
  35. EUPANTOL [Concomitant]
     Active Substance: PANTOPRAZOLE SODIUM
     Route: 048
     Dates: start: 20141202, end: 20141203
  36. SMECTA [Concomitant]
     Active Substance: MONTMORILLONITE
     Indication: PRODUCT USED FOR UNKNOWN INDICATION
     Dosage: SACHET
     Route: 048
     Dates: start: 20141120, end: 20141126
  37. MIDAZOLAM [Concomitant]
     Active Substance: MIDAZOLAM\MIDAZOLAM HYDROCHLORIDE
     Indication: PRODUCT USED FOR UNKNOWN INDICATION
     Route: 041
     Dates: start: 20141121, end: 20141203
  38. DEBRIDAT [Concomitant]
     Active Substance: TRIMEBUTINE MALEATE
     Indication: GASTROINTESTINAL INFECTION
     Route: 065
     Dates: start: 20141124
  39. METHYLPREDNISOLONE. [Concomitant]
     Active Substance: METHYLPREDNISOLONE
     Dosage: 150 MILLIGRAM
     Route: 041
     Dates: start: 20141124, end: 20141125
  40. MORPHINE [Concomitant]
     Active Substance: MORPHINE
     Indication: PRODUCT USED FOR UNKNOWN INDICATION
     Route: 041
     Dates: start: 20141124, end: 20141203
  41. ELECTROLYTES WITH CARBOHYDRATES [Concomitant]
     Indication: LAXATIVE SUPPORTIVE CARE
     Route: 041
     Dates: start: 20141124, end: 20141127
  42. KARDEGIC [Concomitant]
     Active Substance: ASPIRIN LYSINE
     Indication: GASTROINTESTINAL INFECTION
     Route: 065
     Dates: start: 20141124
  43. SPASFON [Concomitant]
     Active Substance: PHLOROGLUCINOL
     Indication: FEBRILE BONE MARROW APLASIA
     Route: 065
  44. SPASFON [Concomitant]
     Active Substance: PHLOROGLUCINOL
     Indication: PAIN
     Route: 048
     Dates: start: 20141203
  45. DEBRIDAT [Concomitant]
     Active Substance: TRIMEBUTINE MALEATE
     Indication: FEBRILE BONE MARROW APLASIA
     Route: 065
  46. GA101 [Suspect]
     Active Substance: OBINUTUZUMAB
     Indication: DIFFUSE LARGE B-CELL LYMPHOMA
     Route: 065
     Dates: start: 20141128, end: 20141128
  47. AZACTAM [Concomitant]
     Active Substance: AZTREONAM
     Indication: FEBRILE BONE MARROW APLASIA
     Route: 041
     Dates: start: 20140816, end: 20141203
  48. METHYLPREDNISOLONE. [Concomitant]
     Active Substance: METHYLPREDNISOLONE
     Route: 041
     Dates: start: 20141125, end: 20141201
  49. SIMVASTATIN. [Concomitant]
     Active Substance: SIMVASTATIN
     Indication: BLOOD CHOLESTEROL ABNORMAL
     Route: 048
     Dates: start: 20141119, end: 20141203
  50. ACUPAN [Concomitant]
     Active Substance: NEFOPAM HYDROCHLORIDE
     Indication: ANALGESIC THERAPY
     Route: 041
     Dates: start: 20141118, end: 20141203
  51. LOVENOX [Concomitant]
     Active Substance: ENOXAPARIN SODIUM
     Route: 058
     Dates: start: 20141125, end: 20141125
  52. HALDOL [Concomitant]
     Active Substance: HALOPERIDOL
     Indication: PROPHYLAXIS
     Route: 041
     Dates: start: 20141121, end: 20141201
  53. TRANSIPEG [Concomitant]
     Active Substance: POLYETHYLENE GLYCOL 3350
     Indication: LAXATIVE SUPPORTIVE CARE
     Dosage: SACHET
     Route: 048
     Dates: start: 20141123, end: 20141126
  54. SELOKEN [Concomitant]
     Active Substance: METOPROLOL
     Indication: PRODUCT USED FOR UNKNOWN INDICATION
     Route: 065
  55. ASPIRIN. [Concomitant]
     Active Substance: ASPIRIN
     Indication: PRODUCT USED FOR UNKNOWN INDICATION
     Route: 065
  56. OXYNORM [Concomitant]
     Active Substance: OXYCODONE HYDROCHLORIDE
     Indication: PRODUCT USED FOR UNKNOWN INDICATION
     Route: 041
  57. METHYLPREDNISOLONE. [Concomitant]
     Active Substance: METHYLPREDNISOLONE
     Route: 041
     Dates: start: 20141202, end: 20141202
  58. XATRAL [Concomitant]
     Active Substance: ALFUZOSIN
     Indication: URINARY RETENTION
     Dosage: 10 MILLIGRAM
     Route: 048
     Dates: start: 20141119, end: 20141203
  59. ZELITREX [Concomitant]
     Active Substance: VALACYCLOVIR HYDROCHLORIDE
     Indication: PROPHYLAXIS
     Route: 048
     Dates: start: 20141118, end: 20141126
  60. EUPANTOL [Concomitant]
     Active Substance: PANTOPRAZOLE SODIUM
     Route: 048
     Dates: start: 20141119, end: 20141126
  61. TIORFAN [Concomitant]
     Active Substance: RACECADOTRIL
     Indication: PROPHYLAXIS
     Dosage: 30 MILLIGRAM
     Route: 048
     Dates: start: 20141120, end: 20141126
  62. LOVENOX [Concomitant]
     Active Substance: ENOXAPARIN SODIUM
     Indication: PROPHYLAXIS
     Route: 058
     Dates: start: 20141121, end: 20141201
  63. HALDOL [Concomitant]
     Active Substance: HALOPERIDOL
     Dosage: 200 MILLIGRAM
     Route: 041
     Dates: start: 20141122, end: 20141125

REACTIONS (1)
  - Tumour flare [Fatal]

NARRATIVE: CASE EVENT DATE: 20141124
